FAERS Safety Report 7775755-9 (Version None)
Quarter: 2011Q3

REPORT INFORMATION
  Report Type: 
  Country: None (occurrence: None)
  Receive Date: 20110923
  Receipt Date: 20110913
  Transmission Date: 20111222
  Serious: Yes (Other)
  Sender: FDA-Public Use
  Company Number: US-ELI_LILLY_AND_COMPANY-US201109004496

PATIENT
  Sex: Male

DRUGS (5)
  1. EFFIENT [Suspect]
     Indication: ANGIOPLASTY
     Dosage: 10 MG, UNK
     Dates: start: 20110909
  2. ASPIRIN [Concomitant]
  3. ATENOLOL [Concomitant]
  4. DIOVAN [Concomitant]
  5. PANTOPRAZOLE [Concomitant]
     Dosage: 40 MG, UNK

REACTIONS (3)
  - PAIN IN EXTREMITY [None]
  - DRUG INEFFECTIVE [None]
  - CHEST DISCOMFORT [None]
